FAERS Safety Report 16489673 (Version 14)
Quarter: 2021Q1

REPORT INFORMATION
  Report Type: Spontaneous
  Country: US (occurrence: US)
  Receive Date: 20190628
  Receipt Date: 20210316
  Transmission Date: 20210419
  Serious: Yes (Hospitalization)
  Sender: FDA-Public Use
  Company Number: US-PFIZER INC-2019277685

PATIENT
  Age: 77 Year
  Sex: Female

DRUGS (2)
  1. XALKORI [Suspect]
     Active Substance: CRIZOTINIB
     Indication: SMALL INTESTINE CARCINOMA
     Dosage: 250 MG, UNK
  2. XALKORI [Suspect]
     Active Substance: CRIZOTINIB
     Indication: VITELLO-INTESTINAL DUCT REMNANT

REACTIONS (12)
  - Morose [Unknown]
  - Asthenia [Unknown]
  - Feeling cold [Unknown]
  - Off label use [Unknown]
  - Dizziness [Not Recovered/Not Resolved]
  - Fatigue [Unknown]
  - Fall [Unknown]
  - Thinking abnormal [Unknown]
  - Neoplasm progression [Unknown]
  - Feeling abnormal [Unknown]
  - Pelvic fracture [Unknown]
  - Cough [Unknown]
